FAERS Safety Report 4650300-5 (Version None)
Quarter: 2005Q2

REPORT INFORMATION
  Report Type: 
  Country: None (occurrence: None)
  Receive Date: 20050428
  Receipt Date: 20050418
  Transmission Date: 20051028
  Serious: Yes (Other)
  Sender: FDA-Public Use
  Company Number: 200510163BCC

PATIENT
  Age: 80 Year
  Sex: Female
  Weight: 54.4316 kg

DRUGS (10)
  1. ALEVE [Suspect]
     Indication: BACK PAIN
     Dosage: 220 MG, ONCE, ORAL
     Route: 048
     Dates: start: 20000430
  2. PREMARIN [Suspect]
  3. PROVERA [Concomitant]
  4. INDERAL [Concomitant]
  5. FUROSEMIDE [Concomitant]
  6. ASPIRIN [Concomitant]
  7. POTASSIUM CHLORIDE [Concomitant]
  8. AROMASIN [Concomitant]
  9. ACTONEL [Concomitant]
  10. TYLENOL (CAPLET) [Concomitant]

REACTIONS (11)
  - ALCOHOL USE [None]
  - ATRIAL FIBRILLATION [None]
  - ATRIAL TACHYCARDIA [None]
  - ATRIOVENTRICULAR BLOCK FIRST DEGREE [None]
  - BLISTER [None]
  - CARDIAC FAILURE CONGESTIVE [None]
  - FATIGUE [None]
  - PLEURAL EFFUSION [None]
  - RASH [None]
  - SINUS BRADYCARDIA [None]
  - SYNCOPE [None]
